FAERS Safety Report 12541766 (Version 1)
Quarter: 2016Q3

REPORT INFORMATION
  Report Type: Spontaneous
  Country: GB (occurrence: GB)
  Receive Date: 20160708
  Receipt Date: 20160708
  Transmission Date: 20161109
  Serious: Yes (Other)
  Sender: FDA-Public Use
  Company Number: GB-ABBVIE-16P-167-1669380-00

PATIENT
  Sex: Female

DRUGS (1)
  1. EPILIM [Suspect]
     Active Substance: VALPROATE SODIUM
     Indication: EPILEPSY
     Route: 065

REACTIONS (5)
  - Uterine contractions abnormal [Recovered/Resolved]
  - Haemorrhage in pregnancy [Recovered/Resolved]
  - Shoulder dystocia [Recovered/Resolved]
  - Live birth [Unknown]
  - Exposure during pregnancy [Unknown]
